FAERS Safety Report 8787138 (Version 2)
Quarter: 2012Q4

REPORT INFORMATION
  Report Type: 
  Country: US (occurrence: US)
  Receive Date: 20120914
  Receipt Date: 20121218
  Transmission Date: 20130627
  Serious: Yes (Other)
  Sender: FDA-Public Use
  Company Number: US-ELI_LILLY_AND_COMPANY-US201209002416

PATIENT
  Age: 30 Year
  Sex: Male
  Weight: 72.56 kg

DRUGS (3)
  1. ZYPREXA [Suspect]
     Indication: SCHIZOPHRENIA
     Dosage: 20 mg, qd
     Route: 048
     Dates: start: 201204
  2. ZYPREXA [Suspect]
     Dosage: 15 mg, qd
     Route: 048
  3. CLOZAPINE [Concomitant]
     Indication: SCHIZOPHRENIA
     Dosage: 7.5 mg, qd
     Route: 048

REACTIONS (1)
  - Pulmonary embolism [Recovered/Resolved]
